FAERS Safety Report 6492521-5 (Version None)
Quarter: 2009Q4

REPORT INFORMATION
  Report Type: 
  Country: None (occurrence: None)
  Receive Date: 20091214
  Receipt Date: 20091202
  Transmission Date: 20100525
  Serious: Yes (Hospitalization)
  Sender: FDA-Public Use
  Company Number: US-WYE-H12457809

PATIENT
  Sex: Male
  Weight: 78.9 kg

DRUGS (13)
  1. BLINDED THERAPY [Suspect]
     Indication: PROTEINURIA
     Route: 048
     Dates: start: 20091008
  2. DOCUSATE SODIUM [Concomitant]
     Dosage: 100 MG - 200 MG AS NEEDED
     Dates: start: 20090622
  3. EPINEPHRINE [Concomitant]
     Dosage: 1 PEN
     Dates: start: 20090410
  4. METOPROLOL TARTRATE [Concomitant]
     Dosage: ESTIMATED START DATE 19-NOV-2009, 25 MG FREQ UNSPEC
  5. CELLCEPT [Concomitant]
     Indication: IMMUNOSUPPRESSANT DRUG THERAPY
     Dates: start: 20091122
  6. PERCOCET [Concomitant]
     Dosage: UNSPECIFIED DOSE AS NEEDED
     Dates: start: 20091021
  7. SODIUM POLYSTYRENE SULFONATE [Concomitant]
     Dosage: 15 G/60 ML
     Dates: start: 20090410
  8. TRAZODONE HCL [Concomitant]
     Dosage: 100 MG AS NEEDED
     Dates: start: 20091113
  9. BACTRIM [Concomitant]
     Dates: start: 20090620
  10. AMBIEN [Concomitant]
     Dosage: 1 TAB AS NEEDED
     Dates: start: 20090410
  11. SIROLIMUS [Suspect]
     Indication: PROPHYLAXIS AGAINST TRANSPLANT REJECTION
     Dates: start: 20091112, end: 20091126
  12. SIROLIMUS [Suspect]
     Dosage: 1 MG ON MON, WED, FRI AND 2 MG ON TUES, THURS, SAT, SUN
     Route: 048
     Dates: start: 20091127
  13. ONDANSETRON [Concomitant]
     Dosage: 1 TAB AS NEEDED
     Dates: start: 20090410

REACTIONS (2)
  - ABDOMINAL PAIN [None]
  - VOMITING [None]
